FAERS Safety Report 25418930 (Version 3)
Quarter: 2025Q3

REPORT INFORMATION
  Report Type: Report from Study
  Country: GB (occurrence: GB)
  Receive Date: 20250610
  Receipt Date: 20250909
  Transmission Date: 20251020
  Serious: Yes (Other)
  Sender: TAKEDA
  Company Number: GB-TAKEDA-2025TUS052657

PATIENT
  Age: 56 Year
  Sex: Female

DRUGS (1)
  1. FRUQUINTINIB [Suspect]
     Active Substance: FRUQUINTINIB
     Indication: Product used for unknown indication

REACTIONS (3)
  - Metastases to lung [Not Recovered/Not Resolved]
  - Metastases to liver [Not Recovered/Not Resolved]
  - Mesenteric neoplasm [Not Recovered/Not Resolved]
